FAERS Safety Report 5069208-9 (Version None)
Quarter: 2006Q3

REPORT INFORMATION
  Report Type: 
  Country: None (occurrence: None)
  Receive Date: 20060803
  Receipt Date: 20060724
  Transmission Date: 20061208
  Serious: Yes (Other)
  Sender: FDA-Public Use
  Company Number: GB-JNJFOC-20060704776

PATIENT
  Age: 52 Year
  Sex: Female
  Weight: 42.5 kg

DRUGS (5)
  1. REMICADE [Suspect]
     Indication: CROHN'S DISEASE
     Dosage: 2 INFUSIONS
     Route: 042
  2. CALCICHEW [Concomitant]
     Indication: CROHN'S DISEASE
     Route: 048
  3. MESALAZINE [Concomitant]
     Indication: CROHN'S DISEASE
     Route: 048
  4. MS CONTIN [Concomitant]
     Indication: CROHN'S DISEASE
     Route: 048
  5. OMEPRAZOLE [Concomitant]
     Indication: CROHN'S DISEASE
     Route: 048

REACTIONS (5)
  - ARTHRALGIA [None]
  - BURNING SENSATION [None]
  - CONTUSION [None]
  - DYSPNOEA [None]
  - RASH [None]
